FAERS Safety Report 14370945 (Version 1)
Quarter: 2018Q1

REPORT INFORMATION
  Report Type: Report from Study
  Country: US (occurrence: US)
  Receive Date: 20180110
  Receipt Date: 20180110
  Transmission Date: 20180509
  Serious: Yes (Other)
  Sender: FDA-Public Use
  Company Number: PHEH2018US000759

PATIENT
  Age: 47 Year
  Sex: Male

DRUGS (1)
  1. COSENTYX [Suspect]
     Active Substance: SECUKINUMAB
     Indication: ANKYLOSING SPONDYLITIS
     Dosage: 150 MG, QMO
     Route: 058

REACTIONS (7)
  - Intellectual disability [Unknown]
  - Device breakage [Unknown]
  - Tooth fracture [Unknown]
  - Autism spectrum disorder [Unknown]
  - Joint noise [Unknown]
  - Inappropriate schedule of drug administration [Unknown]
  - Gait disturbance [Unknown]
